FAERS Safety Report 10342975 (Version 2)
Quarter: 2014Q3

REPORT INFORMATION
  Report Type: Report from Study
  Country: AU (occurrence: AU)
  Receive Date: 20140725
  Receipt Date: 20140725
  Transmission Date: 20150326
  Serious: Yes (Hospitalization)
  Sender: FDA-Public Use
  Company Number: PHHO2010AU11251

PATIENT
  Age: 67 Year
  Sex: Female
  Weight: 118.2 kg

DRUGS (10)
  1. PLACEBO [Suspect]
     Active Substance: UNSPECIFIED INGREDIENT
     Dosage: CODE NOT BROKEN
     Route: 048
     Dates: start: 20100728, end: 20100803
  2. AFINITOR [Suspect]
     Active Substance: EVEROLIMUS
     Dosage: CODE NOT BROKEN
     Route: 048
     Dates: start: 20100728, end: 20100803
  3. EVEROLIMUS [Concomitant]
     Active Substance: EVEROLIMUS
  4. PLACEBO [Suspect]
     Active Substance: UNSPECIFIED INGREDIENT
     Indication: METASTATIC RENAL CELL CARCINOMA
     Dosage: CODE NOT BROKEN
     Route: 048
     Dates: start: 20100415
  5. BLINDED NO TREATMENT RECEIVED [Suspect]
     Active Substance: UNSPECIFIED INGREDIENT
     Dosage: CODE NOT BROKEN
     Route: 048
     Dates: start: 20100728, end: 20100803
  6. ERYTHROMYCIN. [Concomitant]
     Active Substance: ERYTHROMYCIN
     Indication: PRODUCTIVE COUGH
     Dates: start: 20100324, end: 20100426
  7. AFINITOR [Suspect]
     Active Substance: EVEROLIMUS
     Indication: METASTATIC RENAL CELL CARCINOMA
     Dosage: CODE NOT BROKEN
     Route: 048
     Dates: start: 20100415
  8. BLINDED NO TREATMENT RECEIVED [Suspect]
     Active Substance: UNSPECIFIED INGREDIENT
     Indication: METASTATIC RENAL CELL CARCINOMA
     Dosage: CODE NOT BROKEN
     Route: 048
     Dates: start: 20100415
  9. COMPARATOR PACLITAXEL [Suspect]
     Active Substance: PACLITAXEL
     Indication: METASTATIC RENAL CELL CARCINOMA
     Dosage: UNK
     Route: 042
     Dates: start: 20100413
  10. COMPARATOR TRASTUZUMAB [Suspect]
     Active Substance: TRASTUZUMAB
     Indication: METASTATIC RENAL CELL CARCINOMA
     Dosage: UNK
     Route: 042
     Dates: start: 20100413

REACTIONS (3)
  - Epistaxis [Recovered/Resolved]
  - Pyrexia [Recovered/Resolved]
  - Upper respiratory tract infection [Recovered/Resolved]

NARRATIVE: CASE EVENT DATE: 20100518
